FAERS Safety Report 8455668-X (Version None)
Quarter: 2012Q2

REPORT INFORMATION
  Report Type: 
  Country: None (occurrence: None)
  Receive Date: 20120621
  Receipt Date: 20120612
  Transmission Date: 20120825
  Serious: Yes (Disabling)
  Sender: FDA-Public Use
  Company Number: JP-ASTRAZENECA-2012SE39486

PATIENT
  Age: 81 Year
  Sex: Male

DRUGS (2)
  1. URIEF [Suspect]
     Route: 048
     Dates: start: 20100101
  2. TENORMIN [Suspect]
     Indication: HYPERTENSION
     Route: 048
     Dates: start: 20100101

REACTIONS (1)
  - TONGUE DISORDER [None]
